FAERS Safety Report 9339274 (Version 1)
Quarter: 2013Q2

REPORT INFORMATION
  Report Type: Spontaneous
  Country: DE (occurrence: DE)
  Receive Date: 20130610
  Receipt Date: 20130610
  Transmission Date: 20140414
  Serious: Yes (Other)
  Sender: FDA-Public Use
  Company Number: DE-SANOFI-AVENTIS-2013SA056484

PATIENT
  Age: 69 Year
  Sex: Male
  Weight: 114 kg

DRUGS (4)
  1. MULTAQ [Suspect]
     Indication: ATRIAL FIBRILLATION
     Route: 048
  2. ATACAND [Concomitant]
     Indication: SLEEP APNOEA SYNDROME
     Route: 048
  3. MARCUMAR [Concomitant]
     Indication: TRANSIENT ISCHAEMIC ATTACK
     Dosage: DOSE: ACCORDING TO INR VALUE
     Route: 048
  4. METOPROLOL [Concomitant]
     Indication: HYPERTENSION
     Route: 048

REACTIONS (2)
  - Pneumonitis [Recovered/Resolved]
  - Dyspnoea [Recovered/Resolved]
